FAERS Safety Report 16376543 (Version 1)
Quarter: 2019Q3

REPORT INFORMATION
  Report Type: Spontaneous
  Country: US (occurrence: US)
  Receive Date: 20190530
  Receipt Date: 20190530
  Transmission Date: 20191004
  Serious: Yes (Life-Threatening, Hospitalization, Disabling)
  Sender: FDA-Public Use
  Company Number: None

PATIENT
  Age: 40 Year
  Sex: Male
  Weight: 74.25 kg

DRUGS (2)
  1. CIPROFLOXACIN. [Suspect]
     Active Substance: CIPROFLOXACIN
     Indication: LIMB INJURY
     Dates: start: 20140101, end: 20140114
  2. CYMBALTA [Concomitant]
     Active Substance: DULOXETINE HYDROCHLORIDE

REACTIONS (17)
  - Aggression [None]
  - Fatigue [None]
  - Drug hypersensitivity [None]
  - Rash [None]
  - Paraesthesia [None]
  - Tendon rupture [None]
  - Infertility male [None]
  - Allergy to chemicals [None]
  - Confusional state [None]
  - Nerve injury [None]
  - Facial paralysis [None]
  - Prostatic disorder [None]
  - Anxiety [None]
  - Rectal haemorrhage [None]
  - Blindness [None]
  - Gastric disorder [None]
  - Fungal infection [None]

NARRATIVE: CASE EVENT DATE: 20140101
